FAERS Safety Report 5053804-9 (Version None)
Quarter: 2006Q3

REPORT INFORMATION
  Report Type: 
  Country: None (occurrence: None)
  Receive Date: 20060718
  Receipt Date: 20060131
  Transmission Date: 20061208
  Serious: Yes (Hospitalization, Other)
  Sender: FDA-Public Use
  Company Number: US-GLAXOSMITHKLINE-A0591941A

PATIENT
  Sex: Female

DRUGS (10)
  1. LAMICTAL [Suspect]
     Indication: BIPOLAR DISORDER
     Dosage: 50MG UNKNOWN
     Route: 048
     Dates: start: 20041101, end: 20050101
  2. WELLBUTRIN [Suspect]
     Indication: DEPRESSION
     Dosage: 150MG THREE TIMES PER DAY
     Route: 048
  3. RITALIN [Concomitant]
     Indication: ATTENTION DEFICIT/HYPERACTIVITY DISORDER
     Dosage: 20MG THREE TIMES PER DAY
     Route: 048
  4. KLONOPIN [Concomitant]
     Dosage: 1MG THREE TIMES PER DAY
     Route: 048
  5. COUMADIN [Concomitant]
     Route: 048
  6. LIPITOR [Concomitant]
     Route: 048
  7. LIPRAM [Concomitant]
     Route: 048
  8. LASIX [Concomitant]
     Route: 048
  9. PRILOSEC [Concomitant]
     Route: 048
  10. GEODON [Concomitant]

REACTIONS (5)
  - HYPOAESTHESIA [None]
  - ORAL MUCOSAL BLISTERING [None]
  - RASH [None]
  - SPLENECTOMY [None]
  - SUICIDE ATTEMPT [None]
